FAERS Safety Report 9443721 (Version 1)
Quarter: 2013Q3

REPORT INFORMATION
  Report Type: Spontaneous
  Country: US (occurrence: US)
  Receive Date: 20130806
  Receipt Date: 20130806
  Transmission Date: 20140515
  Serious: Yes (Hospitalization)
  Sender: FDA-Public Use
  Company Number: CHPA2013US012345

PATIENT
  Age: 89 Year
  Sex: Male

DRUGS (2)
  1. VOLTAREN GEL [Suspect]
     Indication: ARTHRITIS
     Dosage: UNK, UNK
     Route: 061
     Dates: start: 201301
  2. PIROXICAM [Concomitant]
     Dosage: 20 MG, UNK
     Dates: start: 201306

REACTIONS (2)
  - Anaemia [Unknown]
  - Gastric ulcer [Unknown]
